FAERS Safety Report 20532463 (Version 1)
Quarter: 2022Q1

REPORT INFORMATION
  Report Type: Spontaneous
  Country: US (occurrence: US)
  Receive Date: 20220301
  Receipt Date: 20220301
  Transmission Date: 20220423
  Serious: Yes (Hospitalization)
  Sender: FDA-Public Use
  Company Number: US-AMERICAN REGENT INC-2022000430

PATIENT
  Age: 47 Year
  Sex: Female
  Weight: 102.04 kg

DRUGS (11)
  1. FERRIC CARBOXYMALTOSE [Suspect]
     Active Substance: FERRIC CARBOXYMALTOSE
     Indication: Iron deficiency anaemia
     Dosage: UNK, SINGLE
     Route: 042
     Dates: start: 20201120, end: 20201120
  2. FERRIC CARBOXYMALTOSE [Suspect]
     Active Substance: FERRIC CARBOXYMALTOSE
     Dosage: UNK, SINGLE
     Route: 042
     Dates: start: 20201214, end: 20201214
  3. ZOLOFT [Suspect]
     Active Substance: SERTRALINE HYDROCHLORIDE
     Indication: Anxiety
     Dosage: 50 MILLIGRAM, QD
     Route: 048
     Dates: end: 20210212
  4. ZOLOFT [Suspect]
     Active Substance: SERTRALINE HYDROCHLORIDE
     Indication: Depression
  5. B-COMPLEX [VITAMIN B COMPLEX] [Concomitant]
     Indication: Supplementation therapy
     Dosage: 1 DOSAGE FORM, QD
     Route: 048
  6. VITAMIN D3 [Concomitant]
     Active Substance: CHOLECALCIFEROL
     Indication: Supplementation therapy
     Dosage: 5000 UNITS TWICE A WEEK
     Route: 048
  7. FLONASE [Concomitant]
     Active Substance: FLUTICASONE PROPIONATE
     Indication: Product used for unknown indication
     Dosage: 2 SPRAYS INTO EACH NOSTRIL, QD
     Route: 045
     Dates: start: 20201208
  8. VITAMINS NOS [Concomitant]
     Active Substance: VITAMINS
     Indication: Supplementation therapy
     Dosage: 1 DOSAGE FORM, QD
     Route: 048
  9. NEURONTIN [Concomitant]
     Active Substance: GABAPENTIN
     Indication: Pain
     Dosage: 300 MILLIGRAM, BID
     Route: 048
     Dates: start: 20201125
  10. IBUPROFEN [Concomitant]
     Active Substance: IBUPROFEN
     Indication: Pain
     Dosage: 800 MILLIGRAM EVERY 8 HOURS PRN
     Route: 048
  11. VITAMIN B12 [Concomitant]
     Active Substance: CYANOCOBALAMIN
     Indication: Supplementation therapy
     Dosage: UNK
     Route: 048

REACTIONS (14)
  - Loss of consciousness [Recovered/Resolved]
  - Chest pain [Recovered/Resolved]
  - Malaise [Unknown]
  - Presyncope [Not Recovered/Not Resolved]
  - Somnolence [Not Recovered/Not Resolved]
  - Hyponatraemia [Recovering/Resolving]
  - Hypochloraemia [Recovered/Resolved]
  - Melaena [Not Recovered/Not Resolved]
  - Paraesthesia [Not Recovered/Not Resolved]
  - Hypophosphataemia [Recovered/Resolved]
  - Dizziness [Not Recovered/Not Resolved]
  - Menstruation irregular [Unknown]
  - Heavy menstrual bleeding [Unknown]
  - Product dose omission issue [Unknown]

NARRATIVE: CASE EVENT DATE: 20201122
